FAERS Safety Report 4824057-9 (Version None)
Quarter: 2005Q4

REPORT INFORMATION
  Report Type: 
  Country: None (occurrence: None)
  Receive Date: 20051108
  Receipt Date: 20051021
  Transmission Date: 20060501
  Serious: Yes (Other)
  Sender: FDA-Public Use
  Company Number: USA0510111556

PATIENT
  Age: 77 Year
  Sex: Female

DRUGS (2)
  1. EVISTA [Suspect]
     Indication: OSTEOPOROSIS
  2. FOSAMAX [Concomitant]

REACTIONS (4)
  - ATRIAL FIBRILLATION [None]
  - BONE DENSITY DECREASED [None]
  - BRONCHITIS [None]
  - CONDITION AGGRAVATED [None]
